FAERS Safety Report 5678220-8 (Version None)
Quarter: 2008Q1

REPORT INFORMATION
  Report Type: 
  Country: None (occurrence: None)
  Receive Date: 20080319
  Receipt Date: 20080303
  Transmission Date: 20080703
  Serious: Yes (Other)
  Sender: FDA-Public Use
  Company Number: 2008JP000554

PATIENT
  Age: 69 Year
  Sex: Male
  Weight: 50 kg

DRUGS (9)
  1. PROGRAF [Suspect]
     Indication: RENAL TRANSPLANT
     Dosage: 6 MG, BID, ORAL : ORAL
     Route: 048
     Dates: start: 20070322
  2. ADALAT(NIFEDIPINE) TABLET [Suspect]
     Indication: HYPERTENSION
     Dosage: 10 MG, UID/QD, ORAL
     Route: 048
     Dates: start: 20070325, end: 20070325
  3. CELLCEPT [Concomitant]
  4. MEDROL [Concomitant]
  5. SIMULECT [Concomitant]
  6. ENALAPRIL MALEATE [Concomitant]
  7. BLOPRESS (CANDESARTAN CILEXETIL) TABLET [Concomitant]
  8. PARIET (RABEPRAZOLE SODIUM) TABLET [Concomitant]
  9. LEVOFLOXACIN [Concomitant]

REACTIONS (5)
  - ANURIA [None]
  - BLOOD PRESSURE INCREASED [None]
  - INFLUENZA [None]
  - KIDNEY TRANSPLANT REJECTION [None]
  - RENAL DISORDER [None]
